FAERS Safety Report 9825134 (Version 1)
Quarter: 2013Q4

REPORT INFORMATION
  Report Type: Spontaneous
  Country: US (occurrence: None)
  Receive Date: 20131028
  Receipt Date: 20131028
  Transmission Date: 20140711
  Serious: Yes (Other)
  Sender: FDA-Public Use
  Company Number: 2013US001117

PATIENT
  Age: 77 Year
  Sex: Female
  Weight: 74.8 kg

DRUGS (4)
  1. ICLUSIG (PONATINIB) TABLET, 45MG [Suspect]
     Indication: CHRONIC MYELOID LEUKAEMIA
     Dosage: 45 MG, QD, ORAL
     Route: 048
     Dates: start: 20130123, end: 20130128
  2. ARMOUR THYROID (THYROID) [Concomitant]
  3. HYDROCHLOROTHIAZIDE (HYDROCHLOROTHIAZIDE) [Concomitant]
  4. OMEPRAZOLE (OMEPRAZOLE) [Concomitant]

REACTIONS (9)
  - Skin lesion [None]
  - Eczema [None]
  - Pyrexia [None]
  - Pain in extremity [None]
  - Insomnia [None]
  - Myalgia [None]
  - Neuralgia [None]
  - Asthenia [None]
  - Constipation [None]
